FAERS Safety Report 6996889-2 (Version None)
Quarter: 2010Q3

REPORT INFORMATION
  Report Type: 
  Country: None (occurrence: None)
  Receive Date: 20100918
  Receipt Date: 20090803
  Transmission Date: 20110219
  Serious: No
  Sender: FDA-Public Use
  Company Number: US-WYE-H10439909

PATIENT
  Sex: Female
  Weight: 108.96 kg

DRUGS (2)
  1. PREMPRO [Suspect]
     Indication: LOSS OF LIBIDO
     Dosage: 0.625MG/2.5MG
     Route: 048
     Dates: start: 20090703
  2. PREMPRO [Suspect]
     Indication: ALOPECIA

REACTIONS (6)
  - BLOOD GLUCOSE INCREASED [None]
  - BLOOD PRESSURE INCREASED [None]
  - DYSPNOEA [None]
  - HEADACHE [None]
  - VAGINAL HAEMORRHAGE [None]
  - VULVOVAGINAL MYCOTIC INFECTION [None]
